FAERS Safety Report 14702424 (Version 1)
Quarter: 2018Q2

REPORT INFORMATION
  Report Type: Spontaneous
  Country: US (occurrence: US)
  Receive Date: 20180401
  Receipt Date: 20180401
  Transmission Date: 20180711
  Serious: Yes (Other)
  Sender: FDA-Public Use
  Company Number: PHEH2018US011614

PATIENT
  Sex: Female

DRUGS (1)
  1. AMANTADINE. [Suspect]
     Active Substance: AMANTADINE HYDROCHLORIDE
     Indication: PRODUCT USED FOR UNKNOWN INDICATION
     Dosage: FOR ONE FULL WEEK
     Route: 065
     Dates: start: 201801, end: 201801

REACTIONS (3)
  - Somnolence [Unknown]
  - Hypersomnia [Unknown]
  - Loss of personal independence in daily activities [Unknown]
